FAERS Safety Report 10543004 (Version 2)
Quarter: 2014Q4

REPORT INFORMATION
  Report Type: Spontaneous
  Country: FR (occurrence: FR)
  Receive Date: 20141027
  Receipt Date: 20141229
  Transmission Date: 20150529
  Serious: Yes (Hospitalization)
  Sender: FDA-Public Use
  Company Number: FR-ROCHE-1477206

PATIENT
  Age: 56 Year
  Sex: Female

DRUGS (11)
  1. MINI-SINTROM [Interacting]
     Active Substance: ACENOCOUMAROL
     Indication: PRODUCT USED FOR UNKNOWN INDICATION
     Route: 048
     Dates: end: 20131021
  2. INEXIUM [Concomitant]
     Active Substance: ESOMEPRAZOLE
  3. EUPRESSYL [Concomitant]
     Active Substance: URAPIDIL
  4. NOVONORM [Concomitant]
     Active Substance: REPAGLINIDE
  5. ROCEPHINE [Suspect]
     Active Substance: CEFTRIAXONE SODIUM
     Indication: URINARY TRACT INFECTION
     Route: 058
     Dates: start: 20130930, end: 20131009
  6. LANTUS [Concomitant]
     Active Substance: INSULIN GLARGINE
  7. NEORAL [Concomitant]
     Active Substance: CYCLOSPORINE
  8. APROVEL [Concomitant]
     Active Substance: IRBESARTAN
  9. TAHOR [Concomitant]
     Active Substance: ATORVASTATIN CALCIUM
  10. VICTOZA [Concomitant]
     Active Substance: LIRAGLUTIDE
  11. BISOCE [Concomitant]
     Active Substance: BISOPROLOL

REACTIONS (3)
  - Anaemia [Unknown]
  - Muscle haemorrhage [Recovered/Resolved]
  - Drug interaction [Unknown]

NARRATIVE: CASE EVENT DATE: 20131017
